FAERS Safety Report 9152929 (Version 1)
Quarter: 2013Q1

REPORT INFORMATION
  Report Type: Spontaneous
  Country: US (occurrence: US)
  Receive Date: 20130308
  Receipt Date: 20130308
  Transmission Date: 20140127
  Serious: Yes (Other)
  Sender: FDA-Public Use
  Company Number: US-RB-050745-13

PATIENT
  Sex: Male

DRUGS (1)
  1. DELSYM [Suspect]
     Indication: COUGH
     Route: 048
     Dates: start: 20130224

REACTIONS (9)
  - Convulsion [Recovering/Resolving]
  - Loss of consciousness [Recovering/Resolving]
  - Fall [Recovering/Resolving]
  - Pallor [Recovering/Resolving]
  - Cyanosis [Recovering/Resolving]
  - Foaming at mouth [Recovering/Resolving]
  - Unevaluable event [Recovering/Resolving]
  - Musculoskeletal stiffness [Recovering/Resolving]
  - Dysphonia [Recovering/Resolving]
